FAERS Safety Report 4714109-6 (Version None)
Quarter: 2005Q3

REPORT INFORMATION
  Report Type: 
  Country: None (occurrence: None)
  Receive Date: 20050713
  Receipt Date: 20050629
  Transmission Date: 20060218
  Serious: Yes (Hospitalization, Other)
  Sender: FDA-Public Use
  Company Number: 05-06-1141

PATIENT
  Age: 38 Year
  Sex: Female

DRUGS (13)
  1. CITALOPRAM [Suspect]
     Indication: DEPRESSION
     Dosage: 400MG QD ORAL
     Route: 048
  2. CITALOPRAM [Suspect]
     Indication: PANNICULITIS
     Dosage: 400MG QD ORAL
     Route: 048
  3. LINEZOLID [Suspect]
     Indication: CELLULITIS
     Dosage: 600MG BID ORAL
     Route: 048
  4. TRAZODONE HCL [Suspect]
     Indication: DEPRESSION
     Dosage: 150MG HS ORAL
     Route: 048
  5. OLANZAPINE [Concomitant]
  6. CLONAZEPAM [Concomitant]
  7. HYDROMORPHONE HCL [Concomitant]
  8. PANTOPRAZOLE [Concomitant]
  9. METFORMIN HCL [Concomitant]
  10. PERINDOPRIL [Concomitant]
  11. FUROSEMIDE [Concomitant]
  12. SENNA [Concomitant]
  13. DOCUSATE SODIUM [Concomitant]

REACTIONS (15)
  - ANXIETY [None]
  - BLOOD PRESSURE INCREASED [None]
  - CELLULITIS [None]
  - DRUG TOXICITY [None]
  - HEART RATE INCREASED [None]
  - HOT FLUSH [None]
  - HYPERHIDROSIS [None]
  - HYPOAESTHESIA ORAL [None]
  - NAUSEA [None]
  - PALPITATIONS [None]
  - PANIC ATTACK [None]
  - PANNICULITIS [None]
  - STAPHYLOCOCCAL INFECTION [None]
  - THERAPY NON-RESPONDER [None]
  - TREMOR [None]
